FAERS Safety Report 5724029-6 (Version None)
Quarter: 2008Q2

REPORT INFORMATION
  Report Type: 
  Country: None (occurrence: None)
  Receive Date: 20080428
  Receipt Date: 20080409
  Transmission Date: 20081010
  Serious: Yes (Hospitalization)
  Sender: FDA-Public Use
  Company Number: DSA_31597_2008

PATIENT
  Sex: Female

DRUGS (12)
  1. CARDIZEM [Suspect]
     Indication: DRUG USE FOR UNKNOWN INDICATION
     Dosage: (DF)
  2. LYRICA [Suspect]
     Indication: POST HERPETIC NEURALGIA
     Dosage: (75 MG), (75 MG)
     Dates: start: 20051101, end: 20080111
  3. LYRICA [Suspect]
     Indication: POST HERPETIC NEURALGIA
     Dosage: (75 MG), (75 MG)
     Dates: start: 20080115, end: 20080319
  4. LYRICA [Suspect]
     Indication: POST HERPETIC NEURALGIA
     Dosage: (75 MG), (75 MG)
     Dates: start: 20080320
  5. GLUCOPHAGE /0082702/ [Concomitant]
     Indication: HERPES ZOSTER
  6. TYLENOL /0020001/ [Concomitant]
  7. LASIX [Concomitant]
  8. K-DUR [Concomitant]
  9. PLAVIX [Concomitant]
  10. VITAMINS [Concomitant]
  11. STOOL SOFTENER () [Concomitant]
  12. UNKNOWN MEDICINE FOR GAS () [Concomitant]

REACTIONS (12)
  - ABDOMINAL PAIN UPPER [None]
  - BLOOD PRESSURE ABNORMAL [None]
  - CLUSTER HEADACHE [None]
  - DRUG INEFFECTIVE [None]
  - HALLUCINATION [None]
  - INCOHERENT [None]
  - MALAISE [None]
  - NAUSEA [None]
  - NIGHTMARE [None]
  - OEDEMA PERIPHERAL [None]
  - TREMOR [None]
  - VISION BLURRED [None]
